FAERS Safety Report 19052903 (Version 5)
Quarter: 2021Q2

REPORT INFORMATION
  Report Type: Spontaneous
  Country: AT (occurrence: AT)
  Receive Date: 20210325
  Receipt Date: 20210519
  Transmission Date: 20210717
  Serious: Yes (Death, Other)
  Sender: FDA-Public Use
  Company Number: AT-CELLTRION INC.-2021AT003786

PATIENT

DRUGS (24)
  1. TRASTUZUMAB (UNKNOWN) [Suspect]
     Active Substance: TRASTUZUMAB
     Indication: HER2 POSITIVE GASTRIC CANCER
     Dosage: FIRST LINE THERAPY 6 CYCLES (CYCLICAL)
     Route: 065
     Dates: start: 201609, end: 201703
  2. TRASTUZUMAB. [Suspect]
     Active Substance: TRASTUZUMAB
     Indication: METASTASES TO LIVER
  3. CISPLATIN. [Suspect]
     Active Substance: CISPLATIN
     Indication: HER2 POSITIVE GASTRIC CANCER
     Dosage: FIRST LINE THERAPY 6 CYCLES (CYCLICAL)
     Route: 065
     Dates: start: 201609, end: 201703
  4. CISPLATIN. [Suspect]
     Active Substance: CISPLATIN
     Indication: METASTASES TO LIVER
  5. CAPECITABINE. [Suspect]
     Active Substance: CAPECITABINE
     Indication: ADENOCARCINOMA GASTRIC
     Dosage: UNK, CYCLIC (6 CYCLE)
     Dates: start: 201609, end: 201703
  6. TRASTUZUMAB. [Suspect]
     Active Substance: TRASTUZUMAB
     Indication: METASTASES TO LYMPH NODES
     Dosage: UNK, CYCLIC (6 CYCLE)
     Dates: start: 201609, end: 201703
  7. CISPLATIN. [Suspect]
     Active Substance: CISPLATIN
     Indication: ADENOCARCINOMA GASTRIC
     Dosage: UNK
     Route: 065
     Dates: start: 2016
  8. CAPECITABINE. [Suspect]
     Active Substance: CAPECITABINE
     Indication: METASTASES TO LYMPH NODES
  9. TRASTUZUMAB (UNKNOWN) [Suspect]
     Active Substance: TRASTUZUMAB
     Indication: ADENOCARCINOMA GASTRIC
     Dosage: MAINTENANCE THERAPY
     Route: 065
     Dates: start: 201703, end: 201810
  10. TRASTUZUMAB (UNKNOWN) [Suspect]
     Active Substance: TRASTUZUMAB
     Indication: METASTASES TO LYMPH NODES
     Dosage: SYSTEMIC THERAPY WITH ORAL CAPECITABINE
     Route: 065
     Dates: start: 201810, end: 201903
  11. CISPLATIN. [Suspect]
     Active Substance: CISPLATIN
     Indication: METASTASES TO LYMPH NODES
  12. CISPLATIN. [Suspect]
     Active Substance: CISPLATIN
     Indication: METASTASES TO LIVER
  13. CISPLATIN. [Suspect]
     Active Substance: CISPLATIN
     Indication: ADENOCARCINOMA GASTRIC
     Dosage: UNK, CYCLIC (6 CYCLE)
     Dates: start: 201609, end: 201710
  14. CAPECITABINE. [Suspect]
     Active Substance: CAPECITABINE
     Indication: METASTASES TO LIVER
  15. CAPECITABINE. [Suspect]
     Active Substance: CAPECITABINE
     Indication: METASTASES TO LIVER
  16. TRASTUZUMAB (UNKNOWN) [Suspect]
     Active Substance: TRASTUZUMAB
     Indication: METASTASES TO LIVER
     Dosage: UNK; STOP DATE: ???OCT?2018
     Route: 065
     Dates: end: 201810
  17. CAPECITABINE. [Suspect]
     Active Substance: CAPECITABINE
     Indication: ADENOCARCINOMA GASTRIC
     Dosage: UNK
     Route: 048
     Dates: start: 2016
  18. RAMUCIRUMAB [Concomitant]
     Active Substance: RAMUCIRUMAB
     Dosage: MAINTENANCE THERAPY
     Route: 065
     Dates: start: 201910, end: 201912
  19. TRASTUZUMAB. [Suspect]
     Active Substance: TRASTUZUMAB
     Indication: ADENOCARCINOMA GASTRIC
  20. CAPECITABINE. [Suspect]
     Active Substance: CAPECITABINE
     Indication: HER2 POSITIVE GASTRIC CANCER
     Dosage: FIRST LINE THERAPY 6 CYCLES (CYCLICAL)
     Route: 065
     Dates: start: 201609, end: 201703
  21. CAPECITABINE. [Suspect]
     Active Substance: CAPECITABINE
     Indication: METASTASES TO LYMPH NODES
     Dosage: SYSTEMIC THERAPY WITH TRASTUZUMAB
     Route: 048
     Dates: start: 201810, end: 201903
  22. CISPLATIN. [Suspect]
     Active Substance: CISPLATIN
     Indication: METASTASES TO LYMPH NODES
     Dosage: UNK, CYCLIC (6 CYCLE)
     Dates: start: 201609, end: 201703
  23. RAMUCIRUMAB [Concomitant]
     Active Substance: RAMUCIRUMAB
     Indication: METASTATIC GASTRIC CANCER
     Dosage: 2ND LINE THERAPY 6 CYCLES
     Route: 065
     Dates: start: 201904, end: 201910
  24. PACLITAXEL. [Concomitant]
     Active Substance: PACLITAXEL
     Indication: METASTATIC GASTRIC CANCER
     Dosage: 2ND LINE THERAPY 6 CYCLES
     Route: 065
     Dates: start: 201904, end: 201910

REACTIONS (17)
  - Disease progression [Unknown]
  - Infection [Unknown]
  - White blood cell count decreased [Unknown]
  - Neoplasm progression [Fatal]
  - Ileus [Unknown]
  - Palmar-plantar erythrodysaesthesia syndrome [Unknown]
  - Disease progression [Fatal]
  - Adenocarcinoma [Fatal]
  - Therapy partial responder [Unknown]
  - Metastatic gastric cancer [Fatal]
  - Metastases to peritoneum [Unknown]
  - Metastases to liver [Unknown]
  - Disease progression [Unknown]
  - Metastases to lymph nodes [Fatal]
  - Metastases to lung [Unknown]
  - Colostomy [Unknown]
  - Toxicity to various agents [Unknown]

NARRATIVE: CASE EVENT DATE: 201810
